FAERS Safety Report 6473541-3 (Version None)
Quarter: 2009Q4

REPORT INFORMATION
  Report Type: 
  Country: None (occurrence: None)
  Receive Date: 20091204
  Receipt Date: 20090120
  Transmission Date: 20100525
  Serious: Yes (Hospitalization)
  Sender: FDA-Public Use
  Company Number: US-ELI_LILLY_AND_COMPANY-US200810002243

PATIENT
  Sex: Female

DRUGS (15)
  1. BYETTA [Suspect]
     Indication: TYPE 2 DIABETES MELLITUS
     Dosage: 5 UG, 2/D
     Route: 058
     Dates: start: 20061220, end: 20070207
  2. BYETTA [Suspect]
     Dosage: 10 UG, 2/D
     Route: 058
     Dates: start: 20070208, end: 20080401
  3. BYETTA [Suspect]
     Dosage: 10 UG, 2/D
     Route: 058
     Dates: start: 20080401, end: 20080501
  4. GLIPIZIDE [Concomitant]
     Indication: TYPE 2 DIABETES MELLITUS
     Dosage: 10 MG, 2/D
  5. GLIPIZIDE [Concomitant]
     Dosage: 5 MG, DAILY (1/D)
  6. GLIPIZIDE [Concomitant]
     Dosage: 2.5 MG, 2/D
  7. GLUCOPHAGE [Concomitant]
     Dosage: 500 MG, 2/D
  8. CYMBALTA [Concomitant]
     Indication: ANXIETY
     Dosage: 20 MG, 2/D
     Dates: start: 20060201
  9. NEURONTIN [Concomitant]
     Indication: NEUROPATHY PERIPHERAL
     Dosage: 300 MG, 3/D
  10. ATIVAN [Concomitant]
     Indication: ANXIETY
     Dosage: 0.5 MG, EACH EVENING
  11. SYNTHROID [Concomitant]
     Dosage: 50 UG, DAILY (1/D)
  12. INDERAL [Concomitant]
     Dosage: 40 MG, DAILY (1/D)
  13. COLACE [Concomitant]
     Dosage: 100 MG, 3/D
  14. LASIX [Concomitant]
     Dosage: 40 MG, DAILY (1/D)
     Dates: start: 20061101
  15. LASIX [Concomitant]
     Dosage: 20 MG, DAILY (1/D)

REACTIONS (16)
  - ARTHRITIS [None]
  - ASTHENIA [None]
  - ATRIAL FIBRILLATION [None]
  - BLOOD GLUCOSE DECREASED [None]
  - BLOOD GLUCOSE INCREASED [None]
  - CELLULITIS [None]
  - CELLULITIS STAPHYLOCOCCAL [None]
  - CONFUSIONAL STATE [None]
  - ERYTHEMA [None]
  - FALL [None]
  - NEUROPATHY PERIPHERAL [None]
  - OEDEMA PERIPHERAL [None]
  - PAIN [None]
  - RASH [None]
  - SKIN ULCER [None]
  - SPINAL COLUMN STENOSIS [None]
